FAERS Safety Report 13623422 (Version 4)
Quarter: 2018Q2

REPORT INFORMATION
  Report Type: Spontaneous
  Country: US (occurrence: US)
  Receive Date: 20170607
  Receipt Date: 20180606
  Transmission Date: 20180711
  Serious: No
  Sender: FDA-Public Use
  Company Number: US-ACTELION-A-NJ2017-154863

PATIENT
  Age: 58 Year
  Sex: Female
  Weight: 57.14 kg

DRUGS (2)
  1. VELETRI [Suspect]
     Active Substance: EPOPROSTENOL
     Indication: PULMONARY HYPERTENSION
     Dosage: 28.51 NG/KG, PER MIN
     Route: 042
  2. LETAIRIS [Concomitant]
     Active Substance: AMBRISENTAN

REACTIONS (9)
  - Localised infection [Unknown]
  - Catheter site pruritus [Unknown]
  - Catheter site discharge [Unknown]
  - Infection [Unknown]
  - Catheter site infection [Unknown]
  - Fungal infection [Unknown]
  - Catheter site warmth [Unknown]
  - Swelling [Unknown]
  - Nasopharyngitis [Unknown]
